FAERS Safety Report 7693351-9 (Version None)
Quarter: 2011Q3

REPORT INFORMATION
  Report Type: 
  Country: None (occurrence: None)
  Receive Date: 20110819
  Receipt Date: 20110810
  Transmission Date: 20111222
  Serious: Yes (Death, Disabling)
  Sender: FDA-Public Use
  Company Number: JP-PFIZER INC-2011184899

PATIENT
  Age: 77 Year
  Sex: Male

DRUGS (9)
  1. HANP [Concomitant]
     Dosage: 0.025 GAMMA/DAY
     Route: 042
     Dates: start: 20081020, end: 20081024
  2. MILRILA [Concomitant]
     Dosage: 0.125 GAMMA/DAY
     Route: 042
     Dates: start: 20081021, end: 20081026
  3. DOBUTAMINE [Concomitant]
     Dosage: 2 GAMMA/DAY
     Route: 042
     Dates: start: 20081021, end: 20081022
  4. ASPIRIN [Concomitant]
     Dosage: 100 MG, UNK
     Route: 048
  5. PLAVIX [Concomitant]
     Dosage: 75 MG, UNK
     Route: 048
  6. WARFARIN [Concomitant]
     Dosage: 3 MG, UNK
     Route: 048
     Dates: start: 20081025, end: 20081027
  7. ARGATROBAN [Suspect]
     Indication: HEPARIN-INDUCED THROMBOCYTOPENIA
     Dosage: 2.0 UG/KG/MIN
     Route: 041
     Dates: start: 20081024, end: 20081025
  8. HEPARIN SODIUM [Concomitant]
     Dosage: UNK
     Route: 051
     Dates: start: 20081020
  9. IMIDAPRIL HYDROCHLORIDE [Concomitant]
     Dosage: 2.5 MG, UNK
     Route: 048

REACTIONS (2)
  - ARTERIAL OCCLUSIVE DISEASE [None]
  - CARDIAC FAILURE ACUTE [None]
